FAERS Safety Report 7880409-4 (Version None)
Quarter: 2011Q4

REPORT INFORMATION
  Report Type: 
  Country: None (occurrence: None)
  Receive Date: 20111101
  Receipt Date: 20111019
  Transmission Date: 20120403
  Serious: Yes (Other)
  Sender: FDA-Public Use
  Company Number: PHHY2011DE92657

PATIENT
  Sex: Male

DRUGS (1)
  1. RASILEZ [Suspect]
     Dosage: 150 MG,
     Dates: start: 20110905

REACTIONS (1)
  - HYPONATRAEMIA [None]
